FAERS Safety Report 9631317 (Version 1)
Quarter: 2013Q4

REPORT INFORMATION
  Report Type: Spontaneous
  Country: US (occurrence: None)
  Receive Date: 20131017
  Receipt Date: 20131017
  Transmission Date: 20140711
  Serious: No
  Sender: FDA-Public Use
  Company Number: None

PATIENT
  Age: 71 Year
  Sex: Female
  Weight: 82.2 kg

DRUGS (2)
  1. CARBOPLATIN [Suspect]
     Dosage: AUC 6IV EVERY 3 WEEKS?
     Route: 042
  2. PACLITAXEL [Suspect]
     Route: 042

REACTIONS (3)
  - Blood glucose increased [None]
  - Vomiting [None]
  - Lipase increased [None]
